FAERS Safety Report 20949080 (Version 1)
Quarter: 2022Q2

REPORT INFORMATION
  Report Type: Spontaneous
  Country: JP (occurrence: JP)
  Receive Date: 20220613
  Receipt Date: 20220613
  Transmission Date: 20220721
  Serious: Yes (Other)
  Sender: FDA-Public Use
  Company Number: JP-NOVARTISPH-NVSJ2022JP091850

PATIENT
  Age: 69 Year
  Sex: Male
  Weight: 68.6 kg

DRUGS (34)
  1. VALSARTAN [Suspect]
     Active Substance: VALSARTAN
     Indication: Hypertension
     Dosage: 20 MG, QD, AFTER BREAKFAST
     Route: 048
     Dates: start: 20220120, end: 20220211
  2. CEFAZOLIN SODIUM [Suspect]
     Active Substance: CEFAZOLIN SODIUM
     Indication: Infection
     Dosage: UNK
     Route: 041
     Dates: start: 20211208, end: 20211209
  3. CEFAZOLIN SODIUM [Suspect]
     Active Substance: CEFAZOLIN SODIUM
     Dosage: UNK
     Route: 041
     Dates: start: 20211221
  4. CEFAZOLIN SODIUM [Suspect]
     Active Substance: CEFAZOLIN SODIUM
     Dosage: 1 G, TID
     Route: 041
     Dates: start: 20220125, end: 20220207
  5. CEFAZOLIN SODIUM [Suspect]
     Active Substance: CEFAZOLIN SODIUM
     Dosage: 1 G, BID
     Route: 041
     Dates: start: 20220208, end: 20220213
  6. CEFAZOLIN SODIUM [Suspect]
     Active Substance: CEFAZOLIN SODIUM
     Indication: Infection
     Dosage: 1 G, TID
     Route: 041
     Dates: start: 20220125, end: 20220207
  7. CEFAZOLIN SODIUM [Suspect]
     Active Substance: CEFAZOLIN SODIUM
     Dosage: 1 G, BID
     Route: 041
     Dates: start: 20220208, end: 20220213
  8. FEBUXOSTAT [Concomitant]
     Active Substance: FEBUXOSTAT
     Indication: Product used for unknown indication
     Dosage: 10 MG, QD, AFTER BREAKFAST
     Route: 065
  9. ROSUVASTATIN [Concomitant]
     Active Substance: ROSUVASTATIN
     Indication: Product used for unknown indication
     Dosage: 5 MG, QD, AFTER BREAKFAST
     Route: 048
  10. BISOPROLOL FUMARATE [Concomitant]
     Active Substance: BISOPROLOL FUMARATE
     Indication: Product used for unknown indication
     Dosage: 1.25 MG, QD, AFTER BREAKFAST
     Route: 048
     Dates: end: 20220224
  11. SAMSCA [Concomitant]
     Active Substance: TOLVAPTAN
     Indication: Product used for unknown indication
     Dosage: 15 MG, QD, AFTER BREAKFAST
     Route: 048
     Dates: start: 20220113
  12. AZOSEMIDE [Concomitant]
     Active Substance: AZOSEMIDE
     Indication: Product used for unknown indication
     Dosage: 15 MG, QD, AFTER BREAKFAST
     Route: 048
  13. PIMOBENDAN [Concomitant]
     Active Substance: PIMOBENDAN
     Indication: Product used for unknown indication
     Dosage: 2.5 MG, BID, AFTER BREAKFAST
     Route: 048
     Dates: start: 20220121
  14. MIYA-BM [Concomitant]
     Active Substance: CLOSTRIDIUM BUTYRICUM SPORES STRAIN M-55
     Indication: Product used for unknown indication
     Dosage: 1 G, TID, AFTER EACH MEAL
     Route: 048
     Dates: start: 20220125
  15. ELIQUIS [Concomitant]
     Active Substance: APIXABAN
     Indication: Product used for unknown indication
     Dosage: 2.5 MG, BID, AFTER BREAKFAST AND SUPPER
     Route: 048
     Dates: start: 20220127
  16. VONOPRAZAN FUMARATE [Concomitant]
     Active Substance: VONOPRAZAN FUMARATE
     Indication: Product used for unknown indication
     Dosage: 10 MG, QD, AFTER BREAKFAST
     Route: 048
     Dates: start: 20220127
  17. CALONAL [Concomitant]
     Active Substance: ACETAMINOPHEN
     Indication: Product used for unknown indication
     Dosage: 500 MG, TID, AFTER EACH MEAL
     Route: 048
     Dates: start: 20220129, end: 20220212
  18. AMITIZA [Concomitant]
     Active Substance: LUBIPROSTONE
     Indication: Product used for unknown indication
     Dosage: 24 UG, QD, AFTER BREAKFAST
     Route: 048
     Dates: start: 20220211
  19. INSULIN GLARGINE [Concomitant]
     Active Substance: INSULIN GLARGINE
     Indication: Product used for unknown indication
     Dosage: UNK, QD, BEFORE SUPPER
     Route: 065
     Dates: start: 20220110, end: 20220219
  20. HUMALOG [Concomitant]
     Active Substance: INSULIN LISPRO
     Indication: Product used for unknown indication
     Dosage: UNK, TID, BEFORE EACH MEAL
     Route: 065
     Dates: start: 20220110, end: 20220309
  21. ALBUMIN HUMAN [Concomitant]
     Active Substance: ALBUMIN HUMAN
     Indication: Product used for unknown indication
     Dosage: 25 G
     Route: 065
     Dates: start: 20220126, end: 20220126
  22. ALBUMIN HUMAN [Concomitant]
     Active Substance: ALBUMIN HUMAN
     Dosage: 25 G
     Route: 065
     Dates: start: 20220201, end: 20220201
  23. ALBUMIN HUMAN [Concomitant]
     Active Substance: ALBUMIN HUMAN
     Dosage: 25 G
     Route: 065
     Dates: start: 20220208, end: 20220210
  24. ALBUMIN HUMAN [Concomitant]
     Active Substance: ALBUMIN HUMAN
     Dosage: 25 G
     Route: 065
     Dates: start: 20220212, end: 20220212
  25. ALBUMIN HUMAN [Concomitant]
     Active Substance: ALBUMIN HUMAN
     Dosage: 12.5 G
     Route: 065
     Dates: start: 20220127, end: 20220127
  26. ALBUMIN HUMAN [Concomitant]
     Active Substance: ALBUMIN HUMAN
     Dosage: 12.5 G
     Route: 065
     Dates: start: 20220129, end: 20220131
  27. ALBUMIN HUMAN [Concomitant]
     Active Substance: ALBUMIN HUMAN
     Dosage: 12.5 G
     Route: 065
     Dates: start: 20220202, end: 20220204
  28. ALBUMIN HUMAN [Concomitant]
     Active Substance: ALBUMIN HUMAN
     Dosage: 12.5 G
     Route: 065
     Dates: start: 20220209, end: 20220209
  29. ALBUMIN HUMAN [Concomitant]
     Active Substance: ALBUMIN HUMAN
     Dosage: 12.5 G
     Route: 065
     Dates: start: 20220211, end: 20220211
  30. ALBUMIN HUMAN [Concomitant]
     Active Substance: ALBUMIN HUMAN
     Dosage: 12.5 G
     Route: 065
     Dates: start: 20220213, end: 20220213
  31. SODIUM CHLORIDE [Concomitant]
     Active Substance: SODIUM CHLORIDE
     Indication: Product used for unknown indication
     Dosage: 500 ML
     Route: 065
     Dates: start: 20220209, end: 20220214
  32. VANCOMYCIN HYDROCHLORIDE [Concomitant]
     Active Substance: VANCOMYCIN HYDROCHLORIDE
     Indication: Product used for unknown indication
     Dosage: 1 DOSAGE FORM, QD
     Route: 065
     Dates: start: 20220125, end: 20220126
  33. CEFTRIAXONE SODIUM [Concomitant]
     Active Substance: CEFTRIAXONE SODIUM
     Indication: Product used for unknown indication
     Dosage: 1 DOSAGE FORM, QD
     Route: 065
     Dates: start: 20220124, end: 20220126
  34. CEFTRIAXONE SODIUM [Concomitant]
     Active Substance: CEFTRIAXONE SODIUM
     Indication: Product used for unknown indication
     Dosage: 1 DOSAGE FORM, QD
     Route: 065
     Dates: start: 20220124, end: 20220126

REACTIONS (1)
  - Tubulointerstitial nephritis [Recovering/Resolving]

NARRATIVE: CASE EVENT DATE: 20220213
